FAERS Safety Report 25191539 (Version 2)
Quarter: 2025Q3

REPORT INFORMATION
  Report Type: Report from Study
  Country: EU (occurrence: EU)
  Receive Date: 20250414
  Receipt Date: 20250906
  Transmission Date: 20251021
  Serious: No
  Sender: SANDOZ
  Company Number: EU-SANDOZ-SDZ2025FR022395

PATIENT
  Age: 6 Year
  Sex: Female

DRUGS (1)
  1. OMNITROPE [Suspect]
     Active Substance: SOMATROPIN
     Indication: Product used for unknown indication
     Dosage: 0.6 MG, QD
     Route: 058
     Dates: start: 20250326

REACTIONS (3)
  - Fear of injection [Unknown]
  - Injection site bruising [Unknown]
  - Incorrect dose administered [Unknown]
